FAERS Safety Report 24423525 (Version 2)
Quarter: 2024Q4

REPORT INFORMATION
  Report Type: Spontaneous
  Country: JP (occurrence: JP)
  Receive Date: 20241010
  Receipt Date: 20241118
  Transmission Date: 20250114
  Serious: Yes (Hospitalization)
  Sender: TEVA
  Company Number: JP-TEVA-2023-JP-2916947

PATIENT
  Sex: Female

DRUGS (2)
  1. MODAFINIL [Suspect]
     Active Substance: MODAFINIL
     Indication: Narcolepsy
     Route: 048
  2. PEMOLINE [Suspect]
     Active Substance: PEMOLINE
     Indication: Product used for unknown indication
     Route: 048

REACTIONS (2)
  - Psychotic disorder [Recovering/Resolving]
  - Psychotic disorder [Recovering/Resolving]
